FAERS Safety Report 11870356 (Version 1)
Quarter: 2015Q4

REPORT INFORMATION
  Report Type: Spontaneous
  Country: US (occurrence: None)
  Receive Date: 20151224
  Receipt Date: 20151224
  Transmission Date: 20160305
  Serious: No
  Sender: FDA-Public Use
  Company Number: None

PATIENT
  Age: 57 Year
  Sex: Female

DRUGS (20)
  1. SPIRONOLACTONE. [Concomitant]
     Active Substance: SPIRONOLACTONE
  2. TRAMADOL. [Concomitant]
     Active Substance: TRAMADOL
  3. VANCOMYCIN [Suspect]
     Active Substance: VANCOMYCIN
     Indication: ENDOCARDITIS
     Dosage: EVERY 12 HOURS
     Route: 042
     Dates: start: 20151011
  4. FUROSEMIDE. [Concomitant]
     Active Substance: FUROSEMIDE
  5. HYDROXYZINE [Concomitant]
     Active Substance: HYDROXYZINE\HYDROXYZINE HYDROCHLORIDE
  6. ALBUTEROL. [Concomitant]
     Active Substance: ALBUTEROL
  7. LACTULOSE. [Concomitant]
     Active Substance: LACTULOSE
  8. NYSTATIN ORAL LIQUID [Concomitant]
     Active Substance: NYSTATIN
  9. RIFAXIMIN [Concomitant]
     Active Substance: RIFAXIMIN
  10. ACETAMINOPHEN. [Concomitant]
     Active Substance: ACETAMINOPHEN
  11. CIPROFLOXACIN. [Concomitant]
     Active Substance: CIPROFLOXACIN
  12. CHOLESTYRAMINE. [Concomitant]
     Active Substance: CHOLESTYRAMINE
  13. GABAPENTIN. [Concomitant]
     Active Substance: GABAPENTIN
  14. ENTECAVIR. [Concomitant]
     Active Substance: ENTECAVIR
  15. FLUTICASONE [Concomitant]
     Active Substance: FLUTICASONE\FLUTICASONE PROPIONATE
  16. OMEPRAZOLE. [Concomitant]
     Active Substance: OMEPRAZOLE
  17. SIMETHICONE (DIMETHICONE) [Concomitant]
     Active Substance: DIMETHICONE
  18. SALMETEROL [Concomitant]
     Active Substance: SALMETEROL
  19. INSULIN [Concomitant]
     Active Substance: INSULIN NOS
  20. VANCEMYSIN [Concomitant]

REACTIONS (3)
  - Therapy change [None]
  - Drug level increased [None]
  - Hepatic cirrhosis [None]

NARRATIVE: CASE EVENT DATE: 20151019
